FAERS Safety Report 18441629 (Version 1)
Quarter: 2020Q4

REPORT INFORMATION
  Report Type: Spontaneous
  Country: FR (occurrence: FR)
  Receive Date: 20201029
  Receipt Date: 20201029
  Transmission Date: 20210114
  Serious: Yes (Other)
  Sender: FDA-Public Use
  Company Number: FR-BIOVITRUM-2020FR5154

PATIENT
  Age: 45 Year
  Sex: Female

DRUGS (2)
  1. KINERET [Suspect]
     Active Substance: ANAKINRA
     Indication: PERICARDITIS
     Dosage: IN 0.67 ML SOLUTION FOR INJECTION?IN PRE-FILLED SYRINGE.
     Route: 058
     Dates: start: 20191231, end: 202006
  2. KINERET [Suspect]
     Active Substance: ANAKINRA
     Dosage: IN 0.67 ML SOLUTION FOR INJECTION?IN PRE-FILLED SYRINGE.

REACTIONS (14)
  - Wrong technique in product usage process [Unknown]
  - Drug dependence [Recovering/Resolving]
  - Irritability [Unknown]
  - Off label use [Unknown]
  - Headache [Recovering/Resolving]
  - Tremor [Recovering/Resolving]
  - Injection site vesicles [Recovering/Resolving]
  - Heart rate increased [Unknown]
  - Stress [Recovering/Resolving]
  - Skin reaction [Unknown]
  - Injection site pain [Recovering/Resolving]
  - Pain [Recovering/Resolving]
  - Malaise [Recovering/Resolving]
  - Injection site erythema [Recovering/Resolving]

NARRATIVE: CASE EVENT DATE: 201912
